FAERS Safety Report 9234144 (Version 1)
Quarter: 2013Q2

REPORT INFORMATION
  Report Type: Spontaneous
  Country: JP (occurrence: JP)
  Receive Date: 20130416
  Receipt Date: 20130416
  Transmission Date: 20140414
  Serious: Yes (Other)
  Sender: FDA-Public Use
  Company Number: JP-ROCHE-1211646

PATIENT
  Sex: Male

DRUGS (13)
  1. TAMIFLU [Suspect]
     Indication: INFLUENZA
     Route: 048
     Dates: start: 20130130
  2. OZEX [Suspect]
     Indication: PRODUCT USED FOR UNKNOWN INDICATION
     Dosage: DOSAGE IS UNCERTAIN.
     Route: 065
  3. WARFARIN [Concomitant]
     Route: 048
  4. WARFARIN [Concomitant]
     Route: 048
     Dates: start: 20130220
  5. WARFARIN [Concomitant]
     Route: 048
     Dates: start: 20130222
  6. WARFARIN [Concomitant]
     Route: 048
     Dates: start: 20130225
  7. LASIX [Concomitant]
     Route: 048
  8. BAYASPIRIN [Concomitant]
     Route: 048
  9. ALDACTONE A [Concomitant]
     Route: 048
  10. CARDENALIN [Concomitant]
     Route: 048
  11. SELOKEN [Concomitant]
     Route: 048
  12. ADALAT CR [Concomitant]
     Route: 048
  13. LORELCO [Concomitant]
     Route: 048

REACTIONS (5)
  - International normalised ratio increased [Recovered/Resolved]
  - Intestinal polyp haemorrhage [Unknown]
  - Duodenal ulcer haemorrhage [Unknown]
  - Rash [Unknown]
  - Urinary tract infection [Unknown]
